FAERS Safety Report 18101356 (Version 2)
Quarter: 2020Q3

REPORT INFORMATION
  Report Type: Spontaneous
  Country: PH (occurrence: PH)
  Receive Date: 20200801
  Receipt Date: 20200804
  Transmission Date: 20201103
  Serious: Yes (Death, Other)
  Sender: FDA-Public Use
  Company Number: PH-B.I. PHARMACEUTICALS,INC./RIDGEFIELD-2020-BI-038133

PATIENT
  Age: 74 Year
  Sex: Male

DRUGS (1)
  1. PRAXBIND [Suspect]
     Active Substance: IDARUCIZUMAB
     Indication: PROCOAGULANT THERAPY
     Route: 065
     Dates: start: 20200726

REACTIONS (9)
  - Thrombosis [Unknown]
  - Embolism [Unknown]
  - Melaena [Recovered/Resolved]
  - Haemoptysis [Recovered/Resolved]
  - Death [Fatal]
  - SARS-CoV-2 test positive [Unknown]
  - Pneumonia [Unknown]
  - Bleeding time prolonged [Recovered/Resolved]
  - Coma [Unknown]

NARRATIVE: CASE EVENT DATE: 2020
